FAERS Safety Report 10076418 (Version 1)
Quarter: 2014Q2

REPORT INFORMATION
  Report Type: Report from Study
  Country: US (occurrence: US)
  Receive Date: 20140414
  Receipt Date: 20140414
  Transmission Date: 20141212
  Serious: No
  Sender: FDA-Public Use
  Company Number: US-BAXTER-2012BAX015988

PATIENT
  Age: 55 Year
  Sex: Female
  Weight: 92.27 kg

DRUGS (6)
  1. GAMMAGARD LIQUID [Suspect]
     Indication: IMMUNODEFICIENCY COMMON VARIABLE
     Route: 058
     Dates: start: 20120824, end: 20120824
  2. GELNIQUE [Concomitant]
     Indication: CYSTITIS INTERSTITIAL
  3. SYNTHROID [Concomitant]
     Indication: PRODUCT USED FOR UNKNOWN INDICATION
  4. IBUPROFEN [Concomitant]
     Indication: HEADACHE
  5. BENADRYL [Concomitant]
     Indication: PREMEDICATION
     Route: 048
  6. ADVIL [Concomitant]
     Indication: PREMEDICATION
     Dosage: 2 TABLETS
     Route: 048

REACTIONS (6)
  - Feeling abnormal [Recovered/Resolved]
  - Dizziness [Recovered/Resolved]
  - Feeling abnormal [Not Recovered/Not Resolved]
  - Confusional state [Not Recovered/Not Resolved]
  - Headache [Not Recovered/Not Resolved]
  - Infusion site erythema [Recovered/Resolved]
